FAERS Safety Report 25059453 (Version 1)
Quarter: 2025Q1

REPORT INFORMATION
  Report Type: Spontaneous
  Country: US (occurrence: None)
  Receive Date: 20250310
  Receipt Date: 20250310
  Transmission Date: 20250408
  Serious: Yes (Hospitalization)
  Sender: FDA-CTU
  Company Number: None

PATIENT
  Sex: Male

DRUGS (9)
  1. LENALIDOMIDE [Suspect]
     Active Substance: LENALIDOMIDE
     Indication: Plasma cell myeloma
     Route: 049
     Dates: start: 20240514
  2. BORTEZOMI B [Concomitant]
  3. COLCHICINE [Concomitant]
     Active Substance: COLCHICINE
  4. CYANOCOBALAMIN [Concomitant]
     Active Substance: CYANOCOBALAMIN
  5. DEXAMETHASONE [Concomitant]
     Active Substance: DEXAMETHASONE
  6. ELIQUIS [Concomitant]
     Active Substance: APIXABAN
  7. LENALIDOMIDE [Concomitant]
     Active Substance: LENALIDOMIDE
  8. PROCHLORPER [Concomitant]
  9. VELCADE [Concomitant]
     Active Substance: BORTEZOMIB

REACTIONS (3)
  - Accident [None]
  - Cerebral haemorrhage [None]
  - Intentional dose omission [None]
